FAERS Safety Report 16463626 (Version 1)
Quarter: 2019Q3

REPORT INFORMATION
  Report Type: Spontaneous
  Country: US (occurrence: US)
  Receive Date: 20190620
  Receipt Date: 20190620
  Transmission Date: 20191004
  Serious: Yes (Death)
  Sender: FDA-Public Use
  Company Number: None

PATIENT
  Age: 92 Year
  Sex: Female

DRUGS (4)
  1. WARFARIN [Concomitant]
     Active Substance: WARFARIN
  2. VITAMIN D3 [Concomitant]
     Active Substance: CHOLECALCIFEROL
  3. DILTIAZEM. [Concomitant]
     Active Substance: DILTIAZEM
  4. LUCENTIS [Suspect]
     Active Substance: RANIBIZUMAB
     Indication: AGE-RELATED MACULAR DEGENERATION
     Dosage: ?          OTHER FREQUENCY:Q 4 WEEKS;OTHER ROUTE:INTRAVITREALLY?
     Dates: start: 20171122, end: 20190308

REACTIONS (1)
  - Death [None]

NARRATIVE: CASE EVENT DATE: 20190308
